FAERS Safety Report 6764376-2 (Version None)
Quarter: 2010Q2

REPORT INFORMATION
  Report Type: 
  Country: None (occurrence: None)
  Receive Date: 20100609
  Receipt Date: 20100514
  Transmission Date: 20101027
  Serious: No
  Sender: FDA-Public Use
  Company Number: 2010011783

PATIENT
  Sex: Female

DRUGS (1)
  1. CHILDREN'S ZYRTEC ALLERGY [Suspect]
     Indication: TEETHING
     Dosage: A WHOLE  BOTTLE PERIODICALLY OVER A WEEK, ORAL
     Route: 048
     Dates: start: 20100501, end: 20100510

REACTIONS (3)
  - ABDOMINAL DISCOMFORT [None]
  - OFF LABEL USE [None]
  - PRODUCT QUALITY ISSUE [None]
